FAERS Safety Report 22394402 (Version 1)
Quarter: 2023Q2

REPORT INFORMATION
  Report Type: Spontaneous
  Country: US (occurrence: None)
  Receive Date: 20230531
  Receipt Date: 20230531
  Transmission Date: 20230722
  Serious: Yes (Hospitalization)
  Sender: FDA-Public Use
  Company Number: None

PATIENT
  Age: 85 Year
  Sex: Female

DRUGS (11)
  1. IBRANCE [Suspect]
     Active Substance: PALBOCICLIB
     Indication: Breast cancer female
     Dosage: FREQUENCY : DAILY;?
     Route: 048
  2. LETROZOLE [Concomitant]
  3. PROPRANOLOL [Concomitant]
     Active Substance: PROPRANOLOL HYDROCHLORIDE
  4. LISINOPRIL [Concomitant]
     Active Substance: LISINOPRIL
  5. GABAPENTIN [Concomitant]
     Active Substance: GABAPENTIN
  6. OMEPRAZOLE [Concomitant]
  7. CALCIUM CITRATE [Concomitant]
  8. ASPIRIN [Concomitant]
     Active Substance: ASPIRIN
  9. FISH OIL [Concomitant]
  10. TYLENOL [Concomitant]
     Active Substance: ACETAMINOPHEN
  11. MILK OF MAGNESIA [Concomitant]

REACTIONS (1)
  - Blood pressure increased [None]

NARRATIVE: CASE EVENT DATE: 20230528
